FAERS Safety Report 5697523-4 (Version None)
Quarter: 2008Q2

REPORT INFORMATION
  Report Type: 
  Country: None (occurrence: None)
  Receive Date: 20080408
  Receipt Date: 20080326
  Transmission Date: 20081010
  Serious: Yes (Death, Hospitalization)
  Sender: FDA-Public Use
  Company Number: FI-AMGEN-US272017

PATIENT
  Sex: Male

DRUGS (6)
  1. ENBREL [Suspect]
     Indication: PSORIATIC ARTHROPATHY
     Dosage: UNSPECIFIED
     Route: 058
     Dates: start: 20030901
  2. SIRDALUD [Concomitant]
     Dosage: UNSPECIFIED
     Route: 065
     Dates: end: 20080124
  3. DIOVAN [Concomitant]
     Route: 065
  4. VOLTAREN [Concomitant]
     Dosage: 50 MG EVERY
     Route: 065
     Dates: end: 20080124
  5. METHOTREXATE [Concomitant]
     Route: 065
  6. PREDNISONE [Concomitant]
     Route: 065

REACTIONS (2)
  - CEREBRAL HAEMORRHAGE [None]
  - HEADACHE [None]
